FAERS Safety Report 8900036 (Version 1)
Quarter: 2012Q4

REPORT INFORMATION
  Report Type: 
  Country: US (occurrence: US)
  Receive Date: 20121108
  Receipt Date: 20121108
  Transmission Date: 20130627
  Serious: Yes (Hospitalization)
  Sender: FDA-Public Use
  Company Number: US-AMGEN-USASP2012012241

PATIENT
  Age: 59 Year
  Sex: Female

DRUGS (2)
  1. ENBREL [Suspect]
     Indication: PSORIASIS
     Dosage: 50 mg, 2 times/wk
     Dates: start: 20111205, end: 20120210
  2. SORIATANE [Concomitant]
     Indication: PSORIASIS
     Dosage: 25 mg, qd
     Dates: start: 201008

REACTIONS (1)
  - Cellulitis [Recovered/Resolved]
